FAERS Safety Report 5377830-5 (Version None)
Quarter: 2007Q3

REPORT INFORMATION
  Report Type: 
  Country: None (occurrence: None)
  Receive Date: 20070703
  Receipt Date: 20070627
  Transmission Date: 20080115
  Serious: Yes (Hospitalization)
  Sender: FDA-Public Use
  Company Number: FR-PFIZER INC-2007052939

PATIENT
  Age: 20 Year
  Sex: Male

DRUGS (4)
  1. SOLU-MEDROL [Suspect]
  2. PROFENID [Concomitant]
  3. AMOXICILLIN TRIHYDRATE [Concomitant]
  4. PARACETAMOL [Concomitant]

REACTIONS (4)
  - BRONCHOSPASM [None]
  - DYSPNOEA [None]
  - FACE OEDEMA [None]
  - MUSCULOSKELETAL CHEST PAIN [None]
